FAERS Safety Report 5936380-5 (Version None)
Quarter: 2008Q4

REPORT INFORMATION
  Report Type: 
  Country: None (occurrence: None)
  Receive Date: 20081020
  Receipt Date: 20080715
  Transmission Date: 20090506
  Serious: Yes (Other)
  Sender: FDA-Public Use
  Company Number: HQWYE182317SEP07

PATIENT
  Age: 66 Year
  Sex: Female
  Weight: 79.45 kg

DRUGS (2)
  1. ADVIL PM [Suspect]
     Indication: INSOMNIA
     Dosage: 2 CAPLETS X 1 AT 10:00PM, ORAL
     Route: 048
     Dates: start: 20070911, end: 20070911
  2. PRILOSEC [Concomitant]

REACTIONS (3)
  - DRUG EFFECT PROLONGED [None]
  - FATIGUE [None]
  - FEELING ABNORMAL [None]
